FAERS Safety Report 6880275-X (Version None)
Quarter: 2010Q3

REPORT INFORMATION
  Report Type: 
  Country: None (occurrence: None)
  Receive Date: 20100728
  Receipt Date: 20090806
  Transmission Date: 20110219
  Serious: No
  Sender: FDA-Public Use
  Company Number: US-BRISTOL-MYERS SQUIBB COMPANY-14731970

PATIENT
  Sex: Female

DRUGS (2)
  1. GLUCOVANCE [Suspect]
  2. BYETTA [Suspect]

REACTIONS (1)
  - DIABETES MELLITUS INADEQUATE CONTROL [None]
